FAERS Safety Report 5584051-X (Version None)
Quarter: 2008Q1

REPORT INFORMATION
  Report Type: 
  Country: None (occurrence: None)
  Receive Date: 20080108
  Receipt Date: 20080101
  Transmission Date: 20080703
  Serious: Yes (Death, Other)
  Sender: FDA-Public Use
  Company Number: US-ROCHE-539184

PATIENT
  Age: 19 Year
  Sex: Male

DRUGS (1)
  1. VALIUM [Suspect]
     Indication: DRUG USE FOR UNKNOWN INDICATION
     Route: 065
     Dates: end: 20071201

REACTIONS (3)
  - COMPLETED SUICIDE [None]
  - HOMICIDE [None]
  - PHYSICAL ASSAULT [None]
